FAERS Safety Report 6769454-X (Version None)
Quarter: 2010Q2

REPORT INFORMATION
  Report Type: 
  Country: None (occurrence: None)
  Receive Date: 20100608
  Receipt Date: 20100601
  Transmission Date: 20101027
  Serious: Yes (Hospitalization)
  Sender: FDA-Public Use
  Company Number: 2010SP026714

PATIENT
  Age: 77 Year
  Sex: Female

DRUGS (1)
  1. PEGINTERFERON ALFA-2B [Suspect]
     Indication: HEPATITIS C
     Dosage: 0.1 ML; QW; SC
     Route: 058
     Dates: start: 20080118, end: 20100503

REACTIONS (3)
  - ATELECTASIS [None]
  - BRONCHIECTASIS [None]
  - HAEMOPTYSIS [None]
